FAERS Safety Report 6993548-7 (Version None)
Quarter: 2010Q3

REPORT INFORMATION
  Report Type: 
  Country: None (occurrence: None)
  Receive Date: 20100917
  Receipt Date: 20091111
  Transmission Date: 20110219
  Serious: No
  Sender: FDA-Public Use
  Company Number: US-ASTRAZENECA-2009SE26504

PATIENT
  Sex: Male

DRUGS (2)
  1. SEROQUEL [Suspect]
     Dosage: 100 MG
     Route: 048
  2. SEROQUEL [Suspect]
     Route: 048

REACTIONS (4)
  - CONSTIPATION [None]
  - DEHYDRATION [None]
  - INCORRECT ROUTE OF DRUG ADMINISTRATION [None]
  - POLLAKIURIA [None]
